FAERS Safety Report 15555406 (Version 1)
Quarter: 2018Q4

REPORT INFORMATION
  Report Type: Spontaneous
  Country: US (occurrence: US)
  Receive Date: 20181023
  Receipt Date: 20181023
  Transmission Date: 20190205
  Serious: Yes (Hospitalization)
  Sender: FDA-Public Use
  Company Number: None

PATIENT
  Age: 85 Year
  Sex: Female
  Weight: 63.5 kg

DRUGS (3)
  1. CEFAZOLIN [Concomitant]
     Active Substance: CEFAZOLIN
  2. ALBUMIN [Concomitant]
     Active Substance: ALBUMIN HUMAN
  3. FENTANYL. [Suspect]
     Active Substance: FENTANYL
     Indication: SURGERY
     Route: 042

REACTIONS (5)
  - Femoral neck fracture [None]
  - Pain [None]
  - Sedation complication [None]
  - Fall [None]
  - Respiratory depression [None]

NARRATIVE: CASE EVENT DATE: 20180803
